FAERS Safety Report 18457003 (Version 1)
Quarter: 2020Q4

REPORT INFORMATION
  Report Type: Spontaneous
  Country: US (occurrence: US)
  Receive Date: 20201103
  Receipt Date: 20201103
  Transmission Date: 20210114
  Serious: No
  Sender: FDA-Public Use
  Company Number: US-ASTRAZENECA-2020SF31017

PATIENT
  Age: 71 Year
  Sex: Female
  Weight: 74.8 kg

DRUGS (7)
  1. ASPIRIN. [Concomitant]
     Active Substance: ASPIRIN
  2. VITAMIN D [Concomitant]
     Active Substance: VITAMIN D NOS
  3. BYDUREON BCISE [Suspect]
     Active Substance: EXENATIDE
     Indication: DIABETES MELLITUS
     Route: 058
     Dates: start: 2018
  4. METFORMIN [Concomitant]
     Active Substance: METFORMIN HYDROCHLORIDE
     Indication: DIABETES MELLITUS
  5. LOSARTAN. [Concomitant]
     Active Substance: LOSARTAN
     Indication: BLOOD PRESSURE ABNORMAL
  6. SYNTHROID [Concomitant]
     Active Substance: LEVOTHYROXINE SODIUM
     Indication: THYROID DISORDER
  7. ATORVASTATIN [Concomitant]
     Active Substance: ATORVASTATIN
     Indication: BLOOD CHOLESTEROL ABNORMAL

REACTIONS (8)
  - Memory impairment [Unknown]
  - Nervousness [Unknown]
  - Hunger [Unknown]
  - Injection site mass [Recovering/Resolving]
  - Hyperhidrosis [Unknown]
  - Injection site haemorrhage [Recovered/Resolved]
  - Wrong technique in device usage process [Unknown]
  - Confusional state [Unknown]
